FAERS Safety Report 19107074 (Version 1)
Quarter: 2021Q2

REPORT INFORMATION
  Report Type: Spontaneous
  Country: US (occurrence: US)
  Receive Date: 20210408
  Receipt Date: 20210408
  Transmission Date: 20210717
  Serious: No
  Sender: FDA-Public Use
  Company Number: US-ENCUBE-000051

PATIENT
  Age: 67 Year
  Sex: Female

DRUGS (1)
  1. CLOBETASOL PROPIONATE CREAM 0.05% [Suspect]
     Active Substance: CLOBETASOL PROPIONATE
     Indication: PERINEAL PAIN
     Dosage: ONCE A DAY, BACKSIDE OF THE RECTUM.
     Route: 061
     Dates: start: 20210310, end: 20210311

REACTIONS (8)
  - Headache [Recovered/Resolved]
  - Pyrexia [Recovered/Resolved]
  - Off label use [Unknown]
  - Throat tightness [Recovered/Resolved]
  - Dizziness [Recovered/Resolved]
  - Joint stiffness [Recovered/Resolved]
  - Dry mouth [Recovered/Resolved]
  - Musculoskeletal stiffness [Recovered/Resolved]

NARRATIVE: CASE EVENT DATE: 20210311
